FAERS Safety Report 25484859 (Version 2)
Quarter: 2025Q3

REPORT INFORMATION
  Report Type: Spontaneous
  Country: EU (occurrence: EU)
  Receive Date: 20250626
  Receipt Date: 20250702
  Transmission Date: 20251020
  Serious: Yes (Death, Other)
  Sender: SANDOZ
  Company Number: EU-002147023-NVSC2020DE017137

PATIENT
  Age: 18 Year
  Sex: Female

DRUGS (11)
  1. THYMOCYTE IMMUNE GLOBULIN NOS [Suspect]
     Active Substance: THYMOCYTE IMMUNE GLOBULIN NOS
     Indication: Allogenic stem cell transplantation
     Route: 065
  2. CYCLOSPORINE [Suspect]
     Active Substance: CYCLOSPORINE
     Indication: Immunosuppressant drug therapy
     Route: 065
  3. CYCLOSPORINE [Suspect]
     Active Substance: CYCLOSPORINE
     Indication: Stem cell transplant
  4. FLUDARABINE PHOSPHATE [Suspect]
     Active Substance: FLUDARABINE PHOSPHATE
     Indication: Allogenic stem cell transplantation
     Dosage: 160 MG/M2, QD, 40 MG/M2, QID (4 DOSAGES 40 MG/M2)
     Route: 065
  5. MYCOPHENOLATE MOFETIL [Suspect]
     Active Substance: MYCOPHENOLATE MOFETIL
     Indication: Stem cell transplant
     Route: 065
  6. MYCOPHENOLATE MOFETIL [Suspect]
     Active Substance: MYCOPHENOLATE MOFETIL
     Indication: Immunosuppressant drug therapy
  7. THIOTEPA [Suspect]
     Active Substance: THIOTEPA
     Indication: Stem cell transplant
     Dosage: 10 MG/KG, QD, 5 MG/KG, BID (2 DOSAGES 5 MG/KG)
     Route: 065
  8. THIOTEPA [Suspect]
     Active Substance: THIOTEPA
     Indication: Allogenic stem cell transplantation
  9. TREOSULFAN [Suspect]
     Active Substance: TREOSULFAN
     Indication: Stem cell transplant
     Dosage: 42 MG/M2, QD, 3 DOSAGES 14 MG/M2
     Route: 065
  10. TREOSULFAN [Suspect]
     Active Substance: TREOSULFAN
     Indication: Allogenic stem cell transplantation
  11. CIDOFOVIR [Concomitant]
     Active Substance: CIDOFOVIR
     Indication: Antiviral treatment
     Route: 065

REACTIONS (10)
  - Acute graft versus host disease in skin [Fatal]
  - Acute graft versus host disease in intestine [Fatal]
  - Multiple organ dysfunction syndrome [Fatal]
  - Cytomegalovirus infection reactivation [Recovered/Resolved]
  - Encephalitis viral [Unknown]
  - Adenovirus infection [Recovered/Resolved]
  - Human herpesvirus 6 infection [Unknown]
  - Diarrhoea [Unknown]
  - Abnormal behaviour [Unknown]
  - Product use in unapproved indication [Unknown]
